FAERS Safety Report 9336762 (Version 1)
Quarter: 2013Q2

REPORT INFORMATION
  Report Type: Spontaneous
  Country: TW (occurrence: TW)
  Receive Date: 20130607
  Receipt Date: 20130607
  Transmission Date: 20140414
  Serious: Yes (Other)
  Sender: FDA-Public Use
  Company Number: PHHY2013TW028302

PATIENT
  Age: 15 Year
  Sex: Male

DRUGS (2)
  1. IMATINIB [Suspect]
     Indication: ACUTE LYMPHOCYTIC LEUKAEMIA
     Dosage: UNK UKN, UNK
  2. IMATINIB [Suspect]
     Dosage: 600 MG, DAILY

REACTIONS (5)
  - Graft versus host disease [Unknown]
  - Acute lymphocytic leukaemia recurrent [Unknown]
  - Leukocytosis [Unknown]
  - Cytogenetic abnormality [Unknown]
  - Drug resistance [Unknown]
